FAERS Safety Report 9403763 (Version 1)
Quarter: 2013Q3

REPORT INFORMATION
  Report Type: Spontaneous
  Country: DE (occurrence: DE)
  Receive Date: 20130717
  Receipt Date: 20130717
  Transmission Date: 20140515
  Serious: Yes (Hospitalization)
  Sender: FDA-Public Use
  Company Number: DE-AMGEN-DEUSP2013049612

PATIENT
  Age: 64 Year
  Sex: Male

DRUGS (9)
  1. PEGFILGRASTIM [Suspect]
     Indication: PRODUCT USED FOR UNKNOWN INDICATION
     Dosage: 6 MG, UNK
     Route: 065
     Dates: start: 20130213
  2. CYTARABINE [Suspect]
     Indication: ACUTE MYELOID LEUKAEMIA
     Dosage: 4040 MG, UNK
     Dates: start: 20130204, end: 20130206
  3. RETINOIC ACID [Suspect]
     Indication: ACUTE MYELOID LEUKAEMIA
     Dosage: 30 MG, UNK
     Dates: start: 20130207, end: 20130216
  4. RETINOIC ACID [Suspect]
     Dosage: UNK
     Dates: start: 20130218
  5. GEMTUZUMAB OZOGAMICIN [Suspect]
     Indication: ACUTE MYELOID LEUKAEMIA
     Dosage: 6000 MG, UNK
     Dates: start: 20130204, end: 20130204
  6. GEMTUZUMAB OZOGAMICIN [Suspect]
     Dosage: UNK
     Dates: start: 20130218
  7. METFORMIN [Concomitant]
     Indication: TYPE 2 DIABETES MELLITUS
     Dosage: 1700 MG, UNK
     Route: 048
     Dates: start: 20130214, end: 20130312
  8. COTRIM FORTE [Concomitant]
     Indication: INFECTION PROPHYLAXIS
     Dosage: 1920 MG, UNK
     Route: 048
     Dates: start: 20130218, end: 20130312
  9. CIPROFLOXACIN [Concomitant]
     Indication: INFECTION PROPHYLAXIS
     Dosage: 1000 MG, UNK
     Route: 048
     Dates: start: 20130206, end: 20130216

REACTIONS (1)
  - Bone pain [Recovered/Resolved]
